FAERS Safety Report 12403542 (Version 7)
Quarter: 2016Q4

REPORT INFORMATION
  Report Type: Report from Study
  Country: ZA (occurrence: ZA)
  Receive Date: 20160525
  Receipt Date: 20161223
  Transmission Date: 20170207
  Serious: Yes (Hospitalization)
  Sender: FDA-Public Use
  Company Number: PHHY2016ZA069855

PATIENT
  Age: 42 Year
  Sex: Female

DRUGS (5)
  1. GILENYA [Suspect]
     Active Substance: FINGOLIMOD HYDROCHLORIDE
     Dosage: 0.5 MG, UNK
     Route: 048
  2. GILENYA [Suspect]
     Active Substance: FINGOLIMOD HYDROCHLORIDE
     Indication: MULTIPLE SCLEROSIS
     Dosage: 0.5 MG, UNK
     Route: 048
     Dates: start: 20160517
  3. LYRICA [Concomitant]
     Active Substance: PREGABALIN
     Indication: PRODUCT USED FOR UNKNOWN INDICATION
     Dosage: UNK, BID
     Route: 065
  4. VENLOR [Concomitant]
     Active Substance: VENLAFAXINE HYDROCHLORIDE
     Indication: PRODUCT USED FOR UNKNOWN INDICATION
     Dosage: 75 MG, QD
     Route: 065
  5. VENLOR [Concomitant]
     Active Substance: VENLAFAXINE HYDROCHLORIDE
     Dosage: 150 MG, QD
     Route: 065

REACTIONS (21)
  - Headache [Not Recovered/Not Resolved]
  - Muscular weakness [Unknown]
  - Dyspnoea [Not Recovered/Not Resolved]
  - Dysgeusia [Unknown]
  - Eye pain [Unknown]
  - Fall [Unknown]
  - Fatigue [Recovering/Resolving]
  - Hyperaesthesia [Unknown]
  - Lethargy [Unknown]
  - Pain in extremity [Unknown]
  - Blood pressure fluctuation [Unknown]
  - Drug ineffective [Unknown]
  - Heart rate decreased [Recovered/Resolved]
  - Feeling abnormal [Unknown]
  - Malaise [Unknown]
  - Night sweats [Unknown]
  - Depression [Recovering/Resolving]
  - Asthenia [Unknown]
  - Dry mouth [Unknown]
  - Gait disturbance [Unknown]
  - Nasopharyngitis [Unknown]

NARRATIVE: CASE EVENT DATE: 20160517
